FAERS Safety Report 6927665-4 (Version None)
Quarter: 2010Q3

REPORT INFORMATION
  Report Type: 
  Country: None (occurrence: None)
  Receive Date: 20100817
  Receipt Date: 20100601
  Transmission Date: 20110219
  Serious: No
  Sender: FDA-Public Use
  Company Number: A0862227A

PATIENT
  Age: 67 Year
  Sex: Male

DRUGS (2)
  1. VOTRIENT [Suspect]
     Route: 048
     Dates: start: 20100526, end: 20100529
  2. LISINOPRIL [Concomitant]

REACTIONS (1)
  - BLOOD PRESSURE INCREASED [None]
